FAERS Safety Report 9939856 (Version 1)
Quarter: 2014Q1

REPORT INFORMATION
  Report Type: Report from Study
  Country: US (occurrence: US)
  Receive Date: 20140303
  Receipt Date: 20140303
  Transmission Date: 20141002
  Serious: No
  Sender: FDA-Public Use
  Company Number: US-ABBVIE-13P-163-1037737-00

PATIENT
  Age: 58 Year
  Sex: Female
  Weight: 78.54 kg

DRUGS (11)
  1. HUMIRA [Suspect]
     Indication: COLITIS ULCERATIVE
     Dates: start: 20121215, end: 20121216
  2. HUMIRA [Suspect]
     Dates: start: 20121228, end: 20121228
  3. HUMIRA [Suspect]
     Dates: start: 20130114
  4. MERCAPTOPURINE [Concomitant]
     Indication: COLITIS ULCERATIVE
  5. JANTOVEN [Concomitant]
     Indication: FACTOR V LEIDEN MUTATION
     Dates: start: 201211
  6. JANTOVEN [Concomitant]
     Indication: THROMBOSIS
  7. ATIVAN [Concomitant]
     Indication: ANXIETY
  8. VITAMINS [Concomitant]
     Indication: VITAMIN SUPPLEMENTATION
  9. OXYCODONE [Concomitant]
     Indication: PAIN
  10. IRON PILLS [Concomitant]
     Indication: IRON DEFICIENCY
  11. PANTOPRAZOLE [Concomitant]
     Indication: GASTRIC DISORDER
     Dosage: BEFORE MEALS

REACTIONS (4)
  - Feeling abnormal [Not Recovered/Not Resolved]
  - Insomnia [Not Recovered/Not Resolved]
  - Nausea [Not Recovered/Not Resolved]
  - Fatigue [Not Recovered/Not Resolved]
